FAERS Safety Report 4883334-6 (Version None)
Quarter: 2006Q1

REPORT INFORMATION
  Report Type: 
  Country: None (occurrence: None)
  Receive Date: 20060118
  Receipt Date: 20051117
  Transmission Date: 20060701
  Serious: Yes (Hospitalization)
  Sender: FDA-Public Use
  Company Number: JP-JPN-A20052799

PATIENT
  Age: 75 Year
  Sex: Male

DRUGS (17)
  1. MODACIN [Suspect]
     Indication: POSTOPERATIVE INFECTION
     Dosage: 1000MG TWICE PER DAY
     Route: 042
     Dates: start: 20050718, end: 20050721
  2. CLIDAMACIN [Suspect]
     Indication: POSTOPERATIVE INFECTION
     Dosage: 300MG TWICE PER DAY
     Route: 042
     Dates: start: 20050718, end: 20050721
  3. MILLISROL (JAPAN) [Suspect]
     Indication: CARDIAC FAILURE
     Route: 042
     Dates: start: 20050718, end: 20050721
  4. FULCALIQ [Concomitant]
     Route: 042
     Dates: start: 20050715, end: 20050724
  5. ZANTAC [Concomitant]
     Indication: GASTRIC ULCER
     Dosage: 100MG PER DAY
     Route: 042
     Dates: start: 20050714, end: 20050724
  6. MINERALIN [Concomitant]
     Dosage: 1U PER DAY
     Route: 042
     Dates: start: 20050715, end: 20050724
  7. BISOLVON [Concomitant]
     Indication: RESPIRATORY DISORDER
     Dosage: 12MG PER DAY
     Route: 042
     Dates: start: 20050714, end: 20050722
  8. FESIN [Concomitant]
     Dosage: 60ML PER DAY
     Route: 042
     Dates: start: 20050629, end: 20050711
  9. GLUCOSE [Concomitant]
     Dosage: 1000ML PER DAY
     Route: 042
     Dates: start: 20050714, end: 20050716
  10. ACTIT [Concomitant]
     Dosage: 1000ML PER DAY
     Route: 042
     Dates: start: 20050714, end: 20050717
  11. SOLDEM [Concomitant]
     Dosage: 1000ML PER DAY
     Route: 042
     Dates: start: 20050714, end: 20050717
  12. VC [Concomitant]
     Indication: PARENTERAL NUTRITION
     Dosage: 500MG PER DAY
     Route: 042
     Dates: start: 20050714, end: 20050716
  13. CEFMETAZON [Concomitant]
     Indication: INFECTION PROPHYLAXIS
     Dosage: 2G PER DAY
     Route: 042
     Dates: start: 20050714, end: 20050716
  14. XYLOCAINE [Concomitant]
     Route: 008
     Dates: start: 20050714, end: 20050719
  15. MORPHINE [Concomitant]
     Route: 008
     Dates: start: 20050714, end: 20050719
  16. P N TWIN [Concomitant]
     Route: 042
     Dates: start: 20050716, end: 20050725
  17. PRIMPERAN INJ [Concomitant]
     Indication: NAUSEA
     Dosage: 10MG PER DAY
     Route: 042
     Dates: start: 20050720, end: 20050724

REACTIONS (7)
  - ALANINE AMINOTRANSFERASE INCREASED [None]
  - ASPARTATE AMINOTRANSFERASE INCREASED [None]
  - BLOOD ALKALINE PHOSPHATASE INCREASED [None]
  - BLOOD LACTATE DEHYDROGENASE INCREASED [None]
  - GAMMA-GLUTAMYLTRANSFERASE INCREASED [None]
  - HEPATIC FUNCTION ABNORMAL [None]
  - WHITE BLOOD CELL COUNT INCREASED [None]
